FAERS Safety Report 10350856 (Version 2)
Quarter: 2014Q3

REPORT INFORMATION
  Report Type: Spontaneous
  Country: US (occurrence: US)
  Receive Date: 20140730
  Receipt Date: 20140730
  Transmission Date: 20150326
  Serious: Yes (Hospitalization, Other)
  Sender: FDA-Public Use
  Company Number: US-AMGEN-USASP2012033644

PATIENT
  Age: 55 Year
  Sex: Female
  Weight: 88.66 kg

DRUGS (10)
  1. METOPROLOL [Concomitant]
     Active Substance: METOPROLOL
     Dosage: 50 MG, BID
     Route: 048
  2. METFORMIN [Concomitant]
     Active Substance: METFORMIN HYDROCHLORIDE
     Dosage: 1000 UNK, QID
  3. TOPAMAX [Concomitant]
     Active Substance: TOPIRAMATE
     Dosage: 200 MG, BID
  4. NAPROXEN. [Concomitant]
     Active Substance: NAPROXEN
     Dosage: 500 MG, BID
  5. ASPIRIN. [Concomitant]
     Active Substance: ASPIRIN
     Dosage: 81 MG, QD
  6. ENBREL [Suspect]
     Active Substance: ETANERCEPT
     Indication: RHEUMATOID ARTHRITIS
     Dosage: 50 MG, QWK
     Route: 058
     Dates: start: 2003, end: 201406
  7. LISINOPRIL. [Concomitant]
     Active Substance: LISINOPRIL
     Dosage: 20 UNK, QD
     Route: 048
  8. STOOL SOFTENER [Concomitant]
     Active Substance: DOCUSATE CALCIUM
     Dosage: 100 MG, 01 CAP AS NEEDED
  9. VITAMIN B12 [Concomitant]
     Active Substance: CYANOCOBALAMIN
     Dosage: 1000 MUG, QD
  10. PRAVASTATIN [Concomitant]
     Active Substance: PRAVASTATIN\PRAVASTATIN SODIUM
     Dosage: 40 MG, QD

REACTIONS (7)
  - Mobility decreased [Not Recovered/Not Resolved]
  - Amnesia [Not Recovered/Not Resolved]
  - Pain in extremity [Not Recovered/Not Resolved]
  - Brain neoplasm benign [Recovered/Resolved]
  - Musculoskeletal stiffness [Not Recovered/Not Resolved]
  - Hypertrophic cardiomyopathy [Unknown]
  - Drug ineffective [Not Recovered/Not Resolved]

NARRATIVE: CASE EVENT DATE: 2004
